FAERS Safety Report 8764993 (Version 2)
Quarter: 2013Q4

REPORT INFORMATION
  Report Type: Spontaneous
  Country: US (occurrence: US)
  Receive Date: 20120903
  Receipt Date: 20131101
  Transmission Date: 20140711
  Serious: No
  Sender: FDA-Public Use
  Company Number: US-009507513-1208USA011635

PATIENT
  Age: 87 Year
  Sex: Female
  Weight: 52.15 kg

DRUGS (2)
  1. JANUVIA [Suspect]
     Indication: DIABETES MELLITUS
     Dosage: 50 MG, QD
  2. UROCIT-K [Concomitant]
     Indication: NEPHROLITHIASIS
     Dosage: 1620 MG, QD
     Dates: start: 2012, end: 2012

REACTIONS (1)
  - Blood glucose increased [Not Recovered/Not Resolved]
